FAERS Safety Report 7658733-X (Version None)
Quarter: 2011Q3

REPORT INFORMATION
  Report Type: 
  Country: None (occurrence: None)
  Receive Date: 20110804
  Receipt Date: 20110804
  Transmission Date: 20111222
  Serious: No
  Sender: FDA-Public Use
  Company Number: None

PATIENT
  Sex: Female

DRUGS (12)
  1. ASPIRIN [Concomitant]
  2. OMEPRAZOLE [Concomitant]
  3. HYDROXYCHLOROQUINE [Concomitant]
  4. REVATIO [Concomitant]
  5. AMLODIPINE [Concomitant]
  6. CALCIUM CARBONATE [Concomitant]
  7. VITAMIN D [Concomitant]
  8. LETAIRIS [Suspect]
     Indication: PULMONARY ARTERIAL HYPERTENSION
     Dosage: LETAIRIS 10MG DAILY ORALLY
     Route: 048
     Dates: start: 20110601, end: 20110701
  9. SIMVASTATIN [Concomitant]
  10. METOCLOPRAMIDE [Concomitant]
  11. CAD [Concomitant]
  12. M.V.I. [Concomitant]

REACTIONS (4)
  - SWELLING [None]
  - PAIN IN EXTREMITY [None]
  - OEDEMA PERIPHERAL [None]
  - ERYTHEMA [None]
